FAERS Safety Report 15658590 (Version 1)
Quarter: 2018Q4

REPORT INFORMATION
  Report Type: Spontaneous
  Country: FR (occurrence: FR)
  Receive Date: 20181126
  Receipt Date: 20181126
  Transmission Date: 20190205
  Serious: Yes (Hospitalization)
  Sender: FDA-Public Use
  Company Number: FR-ALLERGAN-1854798US

PATIENT
  Age: 46 Year
  Sex: Male

DRUGS (6)
  1. LEXOMIL [Suspect]
     Active Substance: BROMAZEPAM
     Indication: INTENTIONAL OVERDOSE
     Dosage: 18 MG, QD
     Route: 048
     Dates: start: 20181001, end: 20181001
  2. CITALOPRAM HYDROBROMIDE - BP [Suspect]
     Active Substance: CITALOPRAM HYDROBROMIDE
     Indication: INTENTIONAL OVERDOSE
     Dosage: 100 MG, SINGLE
     Route: 048
     Dates: start: 20181001, end: 20181001
  3. CANDESARTAN CILEXETIL. [Suspect]
     Active Substance: CANDESARTAN CILEXETIL
     Indication: INTENTIONAL OVERDOSE
     Dosage: 4 DF, SINGLE
     Route: 048
     Dates: start: 20181001, end: 20181001
  4. ALCOHOL. [Suspect]
     Active Substance: ALCOHOL
     Indication: INTENTIONAL OVERDOSE
     Dosage: 2 VERRES
     Route: 048
     Dates: start: 20181001, end: 20181001
  5. KETOPROFENE [Suspect]
     Active Substance: KETOPROFEN
     Indication: INTENTIONAL OVERDOSE
     Dosage: 4 DF, SINGLE
     Route: 048
     Dates: start: 20181001, end: 20181001
  6. LAROXYL [Suspect]
     Active Substance: AMITRIPTYLINE HYDROCHLORIDE
     Indication: INTENTIONAL OVERDOSE
     Dosage: 225 MG, SINGLE
     Route: 048
     Dates: start: 20181001, end: 20181001

REACTIONS (3)
  - Intentional overdose [Unknown]
  - Poisoning deliberate [Recovered/Resolved with Sequelae]
  - Coma [Recovered/Resolved]

NARRATIVE: CASE EVENT DATE: 20181001
